FAERS Safety Report 8419555 (Version 4)
Quarter: 2013Q1

REPORT INFORMATION
  Report Type: Report from Study
  Country: JP (occurrence: JP)
  Receive Date: 20120221
  Receipt Date: 20130205
  Transmission Date: 20140127
  Serious: Yes (Hospitalization, Other)
  Sender: FDA-Public Use
  Company Number: JP-VERTEX PHARMACEUTICALS INC.-AE-2012-002366

PATIENT
  Age: 49 Year
  Sex: Male

DRUGS (13)
  1. VX-950 (TELAPREVIR) [Suspect]
     Indication: CHRONIC HEPATITIS C
     Dosage: 2250 MG, QD
     Route: 048
     Dates: start: 20111220, end: 20120227
  2. REBETOL [Suspect]
     Indication: CHRONIC HEPATITIS C
     Dosage: 800 MG, QD
     Route: 048
     Dates: start: 20111220, end: 20120212
  3. REBETOL [Suspect]
     Dosage: 400 MG, QD
     Route: 048
     Dates: start: 20120213, end: 20120227
  4. PEGINTERFERON ALFA-2B [Suspect]
     Indication: CHRONIC HEPATITIS C
     Dosage: 1.5 ?G/KG, WEEKLY
     Route: 058
     Dates: start: 20111220, end: 20120227
  5. LASOPRAN [Concomitant]
     Dosage: 15 MG, QD
     Route: 048
     Dates: end: 20120228
  6. CLARITIN REDITABS [Concomitant]
     Dosage: 10 MG, QD
     Route: 048
     Dates: end: 20120228
  7. POLAPREZINC OD [Concomitant]
     Dosage: 75 MG, QD
     Route: 048
     Dates: end: 20120228
  8. FEROTYM [Concomitant]
     Dosage: 100 MG, QD
     Route: 048
     Dates: end: 20120313
  9. LIVALO [Concomitant]
     Dosage: 2 MG, QD
     Route: 048
  10. LIVALO [Concomitant]
     Dosage: 1 MG, QD
     Route: 048
     Dates: end: 20120228
  11. EPADEL S [Concomitant]
     Dosage: 1800 MG, QD
     Route: 048
     Dates: end: 20120228
  12. DEPAKENE-R [Concomitant]
     Dosage: 200 MG, QD
     Route: 048
     Dates: end: 20120228
  13. MAGLAX [Concomitant]
     Dosage: 1980 MG, QD
     Route: 048
     Dates: start: 20120111, end: 20120228

REACTIONS (5)
  - Renal disorder [Recovered/Resolved]
  - Decreased appetite [Recovered/Resolved]
  - Drug eruption [Recovered/Resolved]
  - Anaemia [Recovered/Resolved]
  - Hyperuricaemia [Recovered/Resolved]
